FAERS Safety Report 14689231 (Version 1)
Quarter: 2018Q1

REPORT INFORMATION
  Report Type: Spontaneous
  Country: GB (occurrence: GB)
  Receive Date: 20180328
  Receipt Date: 20180328
  Transmission Date: 20180509
  Serious: Yes (Disabling)
  Sender: FDA-Public Use
  Company Number: GB-PFIZER INC-2018108999

PATIENT
  Age: 26 Year
  Sex: Female
  Weight: 65 kg

DRUGS (1)
  1. DEPO-PROVERA [Suspect]
     Active Substance: MEDROXYPROGESTERONE ACETATE
     Indication: CONTRACEPTION
     Dosage: 150 MG, UNK
     Route: 030
     Dates: start: 20180212

REACTIONS (7)
  - Pain in extremity [Not Recovered/Not Resolved]
  - Injection site pain [Not Recovered/Not Resolved]
  - Sciatica [Not Recovered/Not Resolved]
  - Hypoaesthesia [Not Recovered/Not Resolved]
  - Gait disturbance [Not Recovered/Not Resolved]
  - Paraesthesia [Not Recovered/Not Resolved]
  - Injection site paraesthesia [Not Recovered/Not Resolved]

NARRATIVE: CASE EVENT DATE: 20180212
